FAERS Safety Report 24328974 (Version 3)
Quarter: 2025Q1

REPORT INFORMATION
  Report Type: Other
  Country: US (occurrence: US)
  Receive Date: 20240917
  Receipt Date: 20250310
  Transmission Date: 20250409
  Serious: Yes (Hospitalization, Other)
  Sender: TRAVERE THERAPEUTICS
  Company Number: US-TRAVERE-2024TVT00841

PATIENT
  Age: 76 Year
  Sex: Female

DRUGS (3)
  1. FILSPARI [Suspect]
     Active Substance: SPARSENTAN
     Indication: IgA nephropathy
     Route: 048
     Dates: start: 20240803, end: 20241012
  2. FILSPARI [Suspect]
     Active Substance: SPARSENTAN
     Dosage: LOT NUMBER: 1976070, EXPIRY DATE: 31-AUG-2025
     Route: 048
     Dates: start: 20241017
  3. TARPEYO [Concomitant]
     Active Substance: BUDESONIDE

REACTIONS (5)
  - Intestinal obstruction [Unknown]
  - Nasopharyngitis [Unknown]
  - Discomfort [Unknown]
  - Diarrhoea [Unknown]
  - Fatigue [Unknown]

NARRATIVE: CASE EVENT DATE: 20241012
